FAERS Safety Report 4341456-2 (Version None)
Quarter: 2004Q2

REPORT INFORMATION
  Report Type: 
  Country: None (occurrence: None)
  Receive Date: 20040419
  Receipt Date: 20040408
  Transmission Date: 20050107
  Serious: No
  Sender: FDA-Public Use
  Company Number: 7809

PATIENT
  Age: 76 Year
  Sex: Female

DRUGS (6)
  1. AMIODARONE HCL [Suspect]
     Indication: ATRIAL FIBRILLATION
     Dosage: 200 MG; PO
     Route: 048
     Dates: start: 20000601, end: 20031001
  2. SIMVASTATIN [Concomitant]
  3. AMLODIPINE [Concomitant]
  4. RANITIDINE [Concomitant]
  5. WARFARIN SODIUM [Concomitant]
  6. THYROXINE [Concomitant]

REACTIONS (1)
  - LUNG INFILTRATION [None]
